FAERS Safety Report 6332606-7 (Version None)
Quarter: 2009Q3

REPORT INFORMATION
  Report Type: 
  Country: None (occurrence: None)
  Receive Date: 20090828
  Receipt Date: 20090820
  Transmission Date: 20100115
  Serious: Yes (Other)
  Sender: FDA-Public Use
  Company Number: JP-AVENTIS-200912343JP

PATIENT
  Age: 60 Year
  Sex: Female

DRUGS (2)
  1. ALLEGRA [Suspect]
     Indication: ECZEMA
     Dosage: DOSE: 60MG X 2 TABLETS
     Route: 048
  2. DERMATOLOGICALS [Concomitant]
     Indication: ECZEMA

REACTIONS (2)
  - ERYTHEMA MULTIFORME [None]
  - OFF LABEL USE [None]
